FAERS Safety Report 17994083 (Version 1)
Quarter: 2020Q3

REPORT INFORMATION
  Report Type: Spontaneous
  Country: US (occurrence: US)
  Receive Date: 20200708
  Receipt Date: 20200708
  Transmission Date: 20201103
  Serious: Yes (Other)
  Sender: FDA-Public Use
  Company Number: US-SUNOVION-2020SUN001963

PATIENT
  Age: 65 Year
  Sex: Female

DRUGS (1)
  1. LATUDA [Suspect]
     Active Substance: LURASIDONE HYDROCHLORIDE
     Dosage: 20 MG
     Route: 048

REACTIONS (8)
  - Fall [Unknown]
  - Attention deficit hyperactivity disorder [Unknown]
  - Sensory loss [Unknown]
  - Animal bite [Unknown]
  - Localised infection [Unknown]
  - Road traffic accident [Unknown]
  - Malaise [Unknown]
  - Back injury [Unknown]
